FAERS Safety Report 8117696-3 (Version None)
Quarter: 2012Q1

REPORT INFORMATION
  Report Type: 
  Country: None (occurrence: None)
  Receive Date: 20120202
  Receipt Date: 20120123
  Transmission Date: 20120608
  Serious: Yes (Hospitalization)
  Sender: FDA-Public Use
  Company Number: TPA2009A03537

PATIENT
  Age: 65 Year
  Sex: Female
  Weight: 63.5036 kg

DRUGS (3)
  1. ACTOS [Suspect]
     Indication: DIABETES MELLITUS
     Dosage: 1 IN 1 D
     Dates: start: 20080101, end: 20100101
  2. MILK OF MAGNESIA TAB [Concomitant]
  3. COUMADIN [Suspect]
     Indication: THROMBOSIS PROPHYLAXIS

REACTIONS (15)
  - HAEMATOCHEZIA [None]
  - TOOTH LOSS [None]
  - CONSTIPATION [None]
  - BONE PAIN [None]
  - CARDIAC FAILURE CONGESTIVE [None]
  - DYSURIA [None]
  - TOOTH DISORDER [None]
  - BLOOD URINE PRESENT [None]
  - INSOMNIA [None]
  - WOUND [None]
  - FLANK PAIN [None]
  - DIZZINESS [None]
  - ABDOMINAL DISTENSION [None]
  - LOSS OF CONSCIOUSNESS [None]
  - BLOOD PRESSURE INCREASED [None]
